FAERS Safety Report 8030590-1 (Version None)
Quarter: 2012Q1

REPORT INFORMATION
  Report Type: 
  Country: None (occurrence: None)
  Receive Date: 20120105
  Receipt Date: 20111220
  Transmission Date: 20120608
  Serious: Yes (Hospitalization, Other)
  Sender: FDA-Public Use
  Company Number: 20110877

PATIENT
  Age: 78 Year
  Sex: Male

DRUGS (1)
  1. KETOROLAC TROMETHAMINE [Suspect]
     Dosage: UNKNOWN NASAL

REACTIONS (3)
  - CONDITION AGGRAVATED [None]
  - ADVERSE DRUG REACTION [None]
  - HAEMOGLOBIN DECREASED [None]
